FAERS Safety Report 16766225 (Version 5)
Quarter: 2021Q1

REPORT INFORMATION
  Report Type: Spontaneous
  Country: US (occurrence: US)
  Receive Date: 20190903
  Receipt Date: 20210331
  Transmission Date: 20210419
  Serious: Yes (Other)
  Sender: FDA-Public Use
  Company Number: US-GILEAD-2019-0425759

PATIENT
  Age: 36 Year
  Sex: Male
  Weight: 54.88 kg

DRUGS (21)
  1. VYVANSE [Concomitant]
     Active Substance: LISDEXAMFETAMINE DIMESYLATE
     Indication: MENTAL DISORDER
     Route: 065
  2. MYTESI [Concomitant]
     Active Substance: CROFELEMER
     Indication: DERMATITIS
  3. MUPIROCIN. [Concomitant]
     Active Substance: MUPIROCIN
     Indication: SKIN INFECTION
     Route: 065
  4. BIKTARVY [Concomitant]
     Active Substance: BICTEGRAVIR SODIUM\EMTRICITABINE\TENOFOVIR ALAFENAMIDE FUMARATE
     Indication: HIV INFECTION
  5. TETRACYCLINE [Concomitant]
     Active Substance: TETRACYCLINE
     Indication: ROAD TRAFFIC ACCIDENT
     Dosage: UNK
     Route: 065
     Dates: start: 2016, end: 2016
  6. FLOMAX [MORNIFLUMATE] [Concomitant]
     Active Substance: MORNIFLUMATE
     Indication: PRODUCT USED FOR UNKNOWN INDICATION
     Route: 065
  7. WELLBUTRIN [Concomitant]
     Active Substance: BUPROPION HYDROCHLORIDE
     Indication: PRODUCT USED FOR UNKNOWN INDICATION
  8. COLESTIPOL [Concomitant]
     Active Substance: COLESTIPOL
     Indication: BLOOD CHOLESTEROL INCREASED
     Route: 065
  9. ZOLOFT [Concomitant]
     Active Substance: SERTRALINE HYDROCHLORIDE
     Indication: MENTAL DISORDER
     Route: 065
  10. METHYLPREDNISOLONE. [Concomitant]
     Active Substance: METHYLPREDNISOLONE
     Indication: ROAD TRAFFIC ACCIDENT
     Dosage: UNK
     Route: 065
     Dates: start: 2016, end: 2016
  11. PANTOPRAZOLE [Concomitant]
     Active Substance: PANTOPRAZOLE
     Indication: PRODUCT USED FOR UNKNOWN INDICATION
     Dosage: UNK
     Route: 065
     Dates: start: 2017, end: 2019
  12. CLOTRIMAZOLE. [Concomitant]
     Active Substance: CLOTRIMAZOLE
     Indication: ANTIFUNGAL TREATMENT
     Route: 065
  13. STRIBILD [Suspect]
     Active Substance: COBICISTAT\ELVITEGRAVIR\EMTRICITABINE\TENOFOVIR DISOPROXIL FUMARATE
     Dosage: UNK
     Route: 048
     Dates: start: 201508, end: 201605
  14. DOXYCYCLINE. [Concomitant]
     Active Substance: DOXYCYCLINE
     Indication: PRODUCT USED FOR UNKNOWN INDICATION
  15. DICLOMINE [DICLOFENAC SODIUM;PARACETAMOL] [Concomitant]
  16. STRIBILD [Suspect]
     Active Substance: COBICISTAT\ELVITEGRAVIR\EMTRICITABINE\TENOFOVIR DISOPROXIL FUMARATE
     Indication: HIV INFECTION
     Dosage: UNK
     Route: 048
     Dates: start: 20150615, end: 20180209
  17. GENVOYA [Concomitant]
     Active Substance: COBICISTAT\ELVITEGRAVIR\EMTRICITABINE\TENOFOVIR ALAFENAMIDE FUMARATE
     Indication: HIV INFECTION
  18. MONTELUKAST [Concomitant]
     Active Substance: MONTELUKAST SODIUM
     Indication: ASTHMA
     Dosage: UNK
     Route: 065
     Dates: start: 201905
  19. PROTONIX [OMEPRAZOLE] [Concomitant]
     Active Substance: OMEPRAZOLE
     Indication: PRODUCT USED FOR UNKNOWN INDICATION
  20. ATRIPLA [Suspect]
     Active Substance: EFAVIRENZ\EMTRICITABINE\TENOFOVIR DISOPROXIL FUMARATE
     Indication: HIV INFECTION
     Dosage: UNK
     Route: 048
     Dates: start: 20120410, end: 20150601
  21. ATRIPLA [Suspect]
     Active Substance: EFAVIRENZ\EMTRICITABINE\TENOFOVIR DISOPROXIL FUMARATE
     Dosage: UNK
     Route: 048
     Dates: start: 201204, end: 201503

REACTIONS (17)
  - End stage renal disease [Not Recovered/Not Resolved]
  - Osteoporosis [Unknown]
  - Bone density decreased [Unknown]
  - Economic problem [Unknown]
  - Renal failure [Not Recovered/Not Resolved]
  - Depression [Unknown]
  - Chronic kidney disease [Unknown]
  - Sleep apnoea syndrome [Unknown]
  - Drug ineffective [Unknown]
  - Bone loss [Unknown]
  - Pain [Unknown]
  - Anxiety [Unknown]
  - Osteonecrosis [Not Recovered/Not Resolved]
  - Renal tubular acidosis [Unknown]
  - Tooth loss [Unknown]
  - Emotional distress [Unknown]
  - Anhedonia [Unknown]

NARRATIVE: CASE EVENT DATE: 201204
